FAERS Safety Report 10693764 (Version 1)
Quarter: 2015Q1

REPORT INFORMATION
  Report Type: Spontaneous
  Country: US (occurrence: US)
  Receive Date: 20150106
  Receipt Date: 20150106
  Transmission Date: 20150721
  Serious: No
  Sender: FDA-Public Use
  Company Number: US-009507513-1412USA011679

PATIENT
  Sex: Female

DRUGS (1)
  1. ASMANEX [Suspect]
     Active Substance: MOMETASONE FUROATE
     Dosage: 1 STANDARD DOSE OF 60, ONE PUFF ONCE A DAY

REACTIONS (4)
  - Overdose [Unknown]
  - No adverse event [Unknown]
  - Product quality issue [Unknown]
  - Wrong technique in drug usage process [Unknown]
